FAERS Safety Report 18817947 (Version 1)
Quarter: 2021Q1

REPORT INFORMATION
  Report Type: Report from Study
  Country: IT (occurrence: IT)
  Receive Date: 20210201
  Receipt Date: 20210201
  Transmission Date: 20210419
  Serious: Yes (Life-Threatening, Hospitalization)
  Sender: FDA-Public Use
  Company Number: IT-PFIZER INC-2021075894

PATIENT
  Age: 71 Year
  Sex: Female

DRUGS (6)
  1. BEVACIZUMAB. [Suspect]
     Active Substance: BEVACIZUMAB
     Indication: CHEMOTHERAPY
     Dosage: UNK, CYCLIC, 6 COURSES
     Dates: end: 201808
  2. GEMCITABINE HYDROCHLORIDE. [Concomitant]
     Active Substance: GEMCITABINE HYDROCHLORIDE
     Indication: OVARIAN CANCER
     Dosage: UNK, CYCLIC, 6 COURSES
     Dates: start: 2019
  3. GEMCITABINE HYDROCHLORIDE. [Concomitant]
     Active Substance: GEMCITABINE HYDROCHLORIDE
     Indication: CHEMOTHERAPY
     Dosage: UNK, CYCLIC, 6 COURSES
     Dates: end: 201808
  4. BEVACIZUMAB. [Suspect]
     Active Substance: BEVACIZUMAB
     Indication: OVARIAN CANCER
     Dosage: UNK, CYCLIC, 6 COURSES
     Dates: start: 2019
  5. CARBOPLATIN. [Concomitant]
     Active Substance: CARBOPLATIN
     Indication: CHEMOTHERAPY
     Dosage: UNK, CYCLIC, 6 COURSES
     Dates: end: 201808
  6. CARBOPLATIN. [Concomitant]
     Active Substance: CARBOPLATIN
     Indication: OVARIAN CANCER
     Dosage: UNK, CYCLIC, 6 COURSES
     Dates: start: 201905

REACTIONS (6)
  - Stress cardiomyopathy [Unknown]
  - Intestinal perforation [Unknown]
  - Intracardiac thrombus [Unknown]
  - Ureteric fistula [Unknown]
  - Wound dehiscence [Unknown]
  - Myocardial ischaemia [Unknown]
